FAERS Safety Report 6183069-6 (Version None)
Quarter: 2009Q2

REPORT INFORMATION
  Report Type: 
  Country: None (occurrence: None)
  Receive Date: 20090507
  Receipt Date: 20090427
  Transmission Date: 20091009
  Serious: Yes (Death, Hospitalization)
  Sender: FDA-Public Use
  Company Number: US-ABBOTT-09P-163-0568435-00

PATIENT
  Sex: Female
  Weight: 48 kg

DRUGS (14)
  1. LEVOTHYROXINE SODIUM [Suspect]
     Indication: HYPOTHYROIDISM
     Route: 048
     Dates: start: 20050531
  2. LEVOTHYROXINE SODIUM [Suspect]
  3. LEVOTHYROXINE SODIUM [Suspect]
  4. ACETAMINOPHEN [Suspect]
     Indication: HEADACHE
     Dosage: 2 G/WK ON AVERAGE, PLUS 500 MG PER NIGHT
     Route: 048
     Dates: start: 20040903
  5. ACETAMINOPHEN [Suspect]
     Indication: INSOMNIA
  6. SUNITINIB [Interacting]
     Indication: GASTROINTESTINAL STROMAL TUMOUR
     Dosage: 4 WEEKS ON 2 WEEKS OFF
     Route: 048
     Dates: start: 20040716, end: 20050702
  7. PREVACID [Concomitant]
     Indication: DRUG USE FOR UNKNOWN INDICATION
     Dates: start: 20030703
  8. MONTELUKAST [Concomitant]
     Indication: DRUG USE FOR UNKNOWN INDICATION
     Dates: start: 20030703
  9. ZYRTEC [Concomitant]
     Indication: DRUG USE FOR UNKNOWN INDICATION
     Dates: start: 20030703
  10. ALBUTEROL [Concomitant]
     Indication: DRUG USE FOR UNKNOWN INDICATION
     Dates: start: 20030703
  11. MOTRIN [Concomitant]
     Indication: DRUG USE FOR UNKNOWN INDICATION
     Dates: start: 20030705
  12. ZANTAC [Concomitant]
     Indication: DRUG USE FOR UNKNOWN INDICATION
     Dates: start: 20040715
  13. EUCERIN [Concomitant]
     Indication: DRUG USE FOR UNKNOWN INDICATION
     Dates: start: 20041007
  14. MEGACE [Concomitant]
     Indication: DRUG USE FOR UNKNOWN INDICATION
     Dates: start: 20041216

REACTIONS (2)
  - DRUG INTERACTION [None]
  - HEPATIC FAILURE [None]
